FAERS Safety Report 15557242 (Version 5)
Quarter: 2019Q1

REPORT INFORMATION
  Report Type: Spontaneous
  Country: US (occurrence: US)
  Receive Date: 20181026
  Receipt Date: 20190313
  Transmission Date: 20190417
  Serious: No
  Sender: FDA-Public Use
  Company Number: US-ACTELION-A-NJ2018-180603

PATIENT
  Age: 46 Year
  Sex: Male
  Weight: 133.79 kg

DRUGS (5)
  1. OPSUMIT [Suspect]
     Active Substance: MACITENTAN
     Indication: PULMONARY HYPERTENSION
     Dosage: 10 MG, QD
     Route: 048
  2. POTASSIUM [Concomitant]
     Active Substance: POTASSIUM
     Dosage: 20 MG, BID
     Dates: start: 2018
  3. REMODULIN [Concomitant]
     Active Substance: TREPROSTINIL
     Dosage: 20 MG, UNK
     Dates: start: 201806
  4. ADEMPAS [Concomitant]
     Active Substance: RIOCIGUAT
     Dosage: 2.5 MG, TID
     Dates: start: 201809
  5. TORSEMIDE. [Concomitant]
     Active Substance: TORSEMIDE
     Dosage: 20 MG, QD
     Dates: start: 2018

REACTIONS (13)
  - Cough [Not Recovered/Not Resolved]
  - Nausea [Recovered/Resolved]
  - Injection site swelling [Unknown]
  - Nasal congestion [Not Recovered/Not Resolved]
  - Blister [Unknown]
  - Peripheral swelling [Recovering/Resolving]
  - Wheezing [Recovering/Resolving]
  - Pulmonary congestion [Not Recovered/Not Resolved]
  - Nasopharyngitis [Not Recovered/Not Resolved]
  - Injection site erythema [Unknown]
  - Injection site pain [Unknown]
  - Diarrhoea [Unknown]
  - Device dislocation [Unknown]

NARRATIVE: CASE EVENT DATE: 201811
